FAERS Safety Report 9892077 (Version 4)
Quarter: 2015Q3

REPORT INFORMATION
  Report Type: Spontaneous
  Country: US (occurrence: US)
  Receive Date: 20140212
  Receipt Date: 20150807
  Transmission Date: 20151125
  Serious: Yes (Hospitalization, Other)
  Sender: FDA-Public Use
  Company Number: US-GLAXOSMITHKLINE-A1060574A

PATIENT
  Age: 41 Year
  Sex: Female

DRUGS (5)
  1. FLOLAN [Suspect]
     Active Substance: EPOPROSTENOL SODIUM
     Indication: PULMONARY HYPERTENSION
     Dosage: 31 NG/KG/MIN (CONCENTRATION 60,000 NG/ML, PUMP RATE 85 ML/DAY, VIAL STRENGTH 1.5 MG), CO
     Route: 042
  2. FLOLAN [Suspect]
     Active Substance: EPOPROSTENOL SODIUM
     Dosage: 32 NG/KG/MIN CONTINUOUS
     Route: 042
  3. ADCIRCA [Concomitant]
     Active Substance: TADALAFIL
  4. COUMADIN [Concomitant]
     Active Substance: WARFARIN SODIUM
  5. FLOLAN [Suspect]
     Active Substance: EPOPROSTENOL SODIUM
     Indication: COR PULMONALE CHRONIC
     Dosage: 10 NG/KG/MIN, 30,000 NG/ML CONCENTRATION, 1.5 MG VIAL STRENGTH
     Route: 042
     Dates: start: 20130918

REACTIONS (11)
  - Nausea [Recovered/Resolved]
  - Diarrhoea [Recovered/Resolved]
  - Catheter site erythema [Recovered/Resolved]
  - Catheter site haemorrhage [Not Recovered/Not Resolved]
  - Medical device complication [Recovered/Resolved]
  - Infusion site infection [Recovered/Resolved]
  - Staphylococcal infection [Recovered/Resolved]
  - Catheter site pain [Recovered/Resolved]
  - Central venous catheterisation [Unknown]
  - Vomiting [Recovered/Resolved]
  - Catheter site related reaction [Recovered/Resolved]

NARRATIVE: CASE EVENT DATE: 20140117
